FAERS Safety Report 5895262-8 (Version None)
Quarter: 2008Q3

REPORT INFORMATION
  Report Type: 
  Country: None (occurrence: None)
  Receive Date: 20080924
  Receipt Date: 20080911
  Transmission Date: 20090109
  Serious: Yes (Other)
  Sender: FDA-Public Use
  Company Number: FR-BAYER-FR-2007-043365

PATIENT
  Age: 42 Year
  Sex: Female
  Weight: 75 kg

DRUGS (2)
  1. MIRENA [Suspect]
     Indication: CONTRACEPTION
     Dosage: TOTAL DAILY DOSE: 20 ?G/D
     Route: 015
     Dates: start: 20011001, end: 20060301
  2. MIRENA [Suspect]
     Dosage: TOTAL DAILY DOSE: 20 ?G/D
     Route: 015
     Dates: start: 20060301, end: 20071201

REACTIONS (8)
  - ACROMEGALY [None]
  - BODY HEIGHT INCREASED [None]
  - HOT FLUSH [None]
  - HYPERHIDROSIS [None]
  - INSULIN-LIKE GROWTH FACTOR INCREASED [None]
  - PITUITARY TUMOUR BENIGN [None]
  - TOOTH MALFORMATION [None]
  - WEIGHT INCREASED [None]
